FAERS Safety Report 6983570-9 (Version None)
Quarter: 2010Q3

REPORT INFORMATION
  Report Type: 
  Country: None (occurrence: None)
  Receive Date: 20100914
  Receipt Date: 20080925
  Transmission Date: 20110219
  Serious: No
  Sender: FDA-Public Use
  Company Number: US-WYE-H06166908

PATIENT
  Age: 16 Year
  Sex: Female

DRUGS (1)
  1. ADVIL LIQUI-GELS [Suspect]
     Indication: HEADACHE
     Dosage: 2 LIQUI-GELS AS NEEDED
     Route: 048
     Dates: start: 20080922, end: 20080923

REACTIONS (1)
  - VIRAL INFECTION [None]
